FAERS Safety Report 24747702 (Version 2)
Quarter: 2024Q4

REPORT INFORMATION
  Report Type: Spontaneous
  Country: CN (occurrence: CN)
  Receive Date: 20241218
  Receipt Date: 20241223
  Transmission Date: 20250115
  Serious: Yes (Hospitalization, Other)
  Sender: ORGANON
  Company Number: CN-ORGANON-O2412CHN001473

PATIENT
  Age: 27 Year
  Sex: Female
  Weight: 59.7 kg

DRUGS (4)
  1. FOLLITROPIN BETA [Suspect]
     Active Substance: FOLLITROPIN BETA
     Indication: Infertility female
     Dosage: 150 IU, QD, SUBCUTANEOUS
     Route: 058
     Dates: start: 20241109, end: 20241116
  2. GONAL-F [Suspect]
     Active Substance: FOLLITROPIN
     Indication: Infertility female
     Dosage: 150 IU, QD, SUBCUTANEOUS
     Route: 058
     Dates: start: 20241117, end: 20241119
  3. CHORIOGONADOTROPIN ALFA [Suspect]
     Active Substance: CHORIOGONADOTROPIN ALFA
     Indication: Infertility female
     Dosage: 250 UG, QD, SUBCUTANEOUS
     Route: 058
     Dates: start: 20241119, end: 20241119
  4. STERILE WATER [Concomitant]
     Active Substance: WATER
     Indication: Infertility female
     Dosage: 1ML, QD, SUBCUTANEOUS
     Route: 058
     Dates: start: 20241117, end: 20241119

REACTIONS (2)
  - Ovarian hyperstimulation syndrome [Recovering/Resolving]
  - Thrombocytopenia [Unknown]

NARRATIVE: CASE EVENT DATE: 20241124
